FAERS Safety Report 7775779-1 (Version None)
Quarter: 2011Q3

REPORT INFORMATION
  Report Type: 
  Country: None (occurrence: None)
  Receive Date: 20110921
  Receipt Date: 20110531
  Transmission Date: 20111222
  Serious: Yes (Hospitalization)
  Sender: FDA-Public Use
  Company Number: UTC-007543

PATIENT
  Age: 59 Year
  Sex: Male

DRUGS (4)
  1. TYVASO [Suspect]
     Indication: PULMONARY ARTERIAL HYPERTENSION
     Dosage: 18-54 MCGS (4 IN1 D), INHALATION
     Route: 055
     Dates: start: 20100805
  2. DIURETICS (DIURETICS) [Concomitant]
  3. ADCIRCA [Concomitant]
  4. COUMADIN [Concomitant]

REACTIONS (1)
  - LUNG TRANSPLANT REJECTION [None]
